FAERS Safety Report 4956581-2 (Version None)
Quarter: 2006Q1

REPORT INFORMATION
  Report Type: 
  Country: None (occurrence: None)
  Receive Date: 20060329
  Receipt Date: 20050304
  Transmission Date: 20060701
  Serious: Yes (Hospitalization)
  Sender: FDA-Public Use
  Company Number: US-MERCK-0503USA01001

PATIENT
  Age: 64 Year
  Sex: Female
  Weight: 75 kg

DRUGS (9)
  1. VIOXX [Suspect]
     Indication: ARTHRALGIA
     Route: 048
     Dates: start: 20010907, end: 20041101
  2. PROTONIX [Concomitant]
     Route: 065
  3. LISINOPRIL [Concomitant]
     Route: 065
  4. HYDROCHLOROTHIAZIDE AND TRIAMTERENE [Concomitant]
     Route: 065
  5. CARBAMAZEPINE [Concomitant]
     Route: 065
  6. PREMARIN [Concomitant]
     Route: 065
  7. ACIPHEX [Concomitant]
     Route: 065
  8. DARVOCET [Concomitant]
     Route: 065
  9. [THERAPY UNSPECIFIED] [Concomitant]
     Indication: BLOOD PRESSURE
     Route: 065

REACTIONS (4)
  - ARTHRALGIA [None]
  - BACK PAIN [None]
  - NECK PAIN [None]
  - PULMONARY EMBOLISM [None]
